FAERS Safety Report 16940488 (Version 1)
Quarter: 2019Q4

REPORT INFORMATION
  Report Type: Spontaneous
  Country: US (occurrence: US)
  Receive Date: 20191021
  Receipt Date: 20191021
  Transmission Date: 20200122
  Serious: Yes (Life-Threatening, Hospitalization)
  Sender: FDA-Public Use
  Company Number: US-MYLANLABS-2019M1097756

PATIENT
  Age: 56 Year
  Sex: Male

DRUGS (3)
  1. ACITRETIN. [Suspect]
     Active Substance: ACITRETIN
     Indication: PSORIASIS
     Route: 065
  2. ANCEF [Suspect]
     Active Substance: CEFAZOLIN SODIUM
     Indication: PRODUCT USED FOR UNKNOWN INDICATION
     Route: 065
  3. ENBREL [Concomitant]
     Active Substance: ETANERCEPT
     Indication: PSORIASIS
     Route: 065

REACTIONS (10)
  - Acute kidney injury [Recovered/Resolved]
  - Ischaemic stroke [Recovered/Resolved]
  - Thrombosis [Recovered/Resolved]
  - Oliguria [Recovered/Resolved]
  - Retinal artery occlusion [Recovered/Resolved]
  - Wheezing [Recovered/Resolved]
  - Hypotension [Recovered/Resolved]
  - Acute myocardial infarction [Recovered/Resolved]
  - Antiphospholipid syndrome [Recovered/Resolved]
  - Dyspnoea [Recovered/Resolved]
